FAERS Safety Report 4735854-2 (Version None)
Quarter: 2005Q3

REPORT INFORMATION
  Report Type: 
  Country: None (occurrence: None)
  Receive Date: 20050805
  Receipt Date: 20050725
  Transmission Date: 20060218
  Serious: Yes (Hospitalization, Other)
  Sender: FDA-Public Use
  Company Number: US-JNJFOC-20050705182

PATIENT
  Age: 29 Year
  Sex: Female

DRUGS (1)
  1. DURAGESIC-100 [Suspect]
     Route: 048

REACTIONS (2)
  - DRUG ABUSER [None]
  - INCORRECT ROUTE OF DRUG ADMINISTRATION [None]
